FAERS Safety Report 4586851-1 (Version None)
Quarter: 2005Q1

REPORT INFORMATION
  Report Type: 
  Country: None (occurrence: None)
  Receive Date: 20050217
  Receipt Date: 20050217
  Transmission Date: 20050727
  Serious: No
  Sender: FDA-Public Use
  Company Number: None

PATIENT
  Age: 16 Year
  Sex: Male
  Weight: 43.5453 kg

DRUGS (1)
  1. ZOLOFT [Suspect]
     Indication: OBSESSIVE-COMPULSIVE DISORDER
     Dosage: .25   .25 MG PER DAY   ORAL
     Route: 048
     Dates: start: 20010101, end: 20020701

REACTIONS (6)
  - ABNORMAL BEHAVIOUR [None]
  - CRYING [None]
  - EMOTIONAL DISORDER [None]
  - MOOD ALTERED [None]
  - PERSONALITY CHANGE [None]
  - SUICIDAL IDEATION [None]
